FAERS Safety Report 7861278-5 (Version None)
Quarter: 2011Q4

REPORT INFORMATION
  Report Type: 
  Country: None (occurrence: None)
  Receive Date: 20111026
  Receipt Date: 20111011
  Transmission Date: 20120403
  Serious: Yes (Hospitalization)
  Sender: FDA-Public Use
  Company Number: 337256

PATIENT
  Age: 50 Day
  Sex: Male
  Weight: 3.1 kg

DRUGS (2)
  1. NOVORAPID CHU FLEXPEN (INSULIN ASPART) SOLUTION FOR INJECTION, 100U/ML [Suspect]
     Indication: TYPE 1 DIABETES MELLITUS
     Dosage: TRANSPLACENTAL
     Route: 064
  2. LANTUS [Concomitant]

REACTIONS (3)
  - DIABETIC KETOACIDOSIS [None]
  - TYPE 1 DIABETES MELLITUS [None]
  - MATERNAL DRUGS AFFECTING FOETUS [None]
